FAERS Safety Report 8308921-4 (Version None)
Quarter: 2012Q2

REPORT INFORMATION
  Report Type: 
  Country: None (occurrence: None)
  Receive Date: 20120424
  Receipt Date: 20120330
  Transmission Date: 20120825
  Serious: Yes (Other)
  Sender: FDA-Public Use
  Company Number: CHPA2012CA006687

PATIENT
  Age: 70 Year
  Sex: Female

DRUGS (1)
  1. BUCKLEY'S DM [Suspect]
     Indication: COUGH
     Dosage: 1 TSP, PRN
     Route: 048

REACTIONS (2)
  - EXPIRED DRUG ADMINISTERED [None]
  - BLOOD CHOLESTEROL INCREASED [None]
